FAERS Safety Report 6382089-6 (Version None)
Quarter: 2009Q3

REPORT INFORMATION
  Report Type: 
  Country: None (occurrence: None)
  Receive Date: 20090930
  Receipt Date: 20090921
  Transmission Date: 20100115
  Serious: Yes (Other)
  Sender: FDA-Public Use
  Company Number: PHHY2009IT40875

PATIENT
  Sex: Female

DRUGS (2)
  1. ZOMETA [Suspect]
     Indication: METASTASES TO BREAST
     Dosage: 4 MG + 5 ML (1 POSOLOGIC UNIT MONTHLY)
     Route: 042
     Dates: start: 20060401, end: 20070430
  2. CORTISONE [Concomitant]
     Dosage: UNK
     Dates: start: 20060301, end: 20070331

REACTIONS (1)
  - OSTEOMYELITIS [None]
